FAERS Safety Report 9836909 (Version 1)
Quarter: 2013Q4

REPORT INFORMATION
  Report Type: Spontaneous
  Country: US (occurrence: None)
  Receive Date: 20131205
  Receipt Date: 20131205
  Transmission Date: 20140711
  Serious: No
  Sender: FDA-Public Use
  Company Number: 163-POMAL-13105860

PATIENT
  Age: 65 Year
  Sex: Male

DRUGS (1)
  1. POMALYST (POMALIDOMIDE) (4 MILLIGRAM, CAPSULES) [Suspect]
     Indication: PLASMA CELL MYELOMA
     Dosage: 4MG, 21 IN 21D, PO
     Route: 048
     Dates: start: 20130903

REACTIONS (7)
  - Pain [None]
  - Lethargy [None]
  - Pyrexia [None]
  - Dizziness [None]
  - Haemoglobin decreased [None]
  - White blood cell count decreased [None]
  - Plasma cell myeloma [None]
